FAERS Safety Report 5246754-6 (Version None)
Quarter: 2007Q1

REPORT INFORMATION
  Report Type: 
  Country: None (occurrence: None)
  Receive Date: 20070220
  Receipt Date: 20070206
  Transmission Date: 20070707
  Serious: Yes (Other)
  Sender: FDA-Public Use
  Company Number: 34255

PATIENT
  Age: 25 Year
  Sex: Male

DRUGS (1)
  1. DICYCLOMINE HCL [Suspect]
     Dosage: 20MG/IV
     Route: 042

REACTIONS (2)
  - INCORRECT ROUTE OF DRUG ADMINISTRATION [None]
  - MEDICATION ERROR [None]
